FAERS Safety Report 6590191-9 (Version None)
Quarter: 2010Q1

REPORT INFORMATION
  Report Type: 
  Country: None (occurrence: None)
  Receive Date: 20100203
  Receipt Date: 20081211
  Transmission Date: 20100710
  Serious: Yes (Other)
  Sender: FDA-Public Use
  Company Number: 1713747-2010-00004

PATIENT
  Sex: Female

DRUGS (1)
  1. STAY SAFE 1.5% DEX. LM 3L, 4PK [Suspect]
     Indication: RENAL FAILURE CHRONIC
     Dosage: INTRAPERITONEALLY
     Route: 033
     Dates: start: 20081209

REACTIONS (1)
  - PERITONITIS [None]
